FAERS Safety Report 7197554-1 (Version None)
Quarter: 2010Q4

REPORT INFORMATION
  Report Type: 
  Country: None (occurrence: None)
  Receive Date: 20101213
  Receipt Date: 20101119
  Transmission Date: 20110411
  Serious: Yes (Death)
  Sender: FDA-Public Use
  Company Number: ADR-UNK-014

PATIENT
  Age: 161 Day
  Sex: Male
  Weight: 0.55 kg

DRUGS (2)
  1. EFAVIRENZ [Suspect]
     Indication: ACQUIRED IMMUNODEFICIENCY SYNDROME
     Dosage: 600 MG/DAY; ORAL
     Route: 048
     Dates: start: 20100610
  2. LAMIVUDINE + ZIDOVUDINE [Suspect]
     Indication: ACQUIRED IMMUNODEFICIENCY SYNDROME
     Dosage: BID; ORAL
     Route: 048
     Dates: start: 20100610

REACTIONS (3)
  - DRUG EXPOSURE DURING PREGNANCY [None]
  - PREMATURE LABOUR [None]
  - STILLBIRTH [None]
